FAERS Safety Report 17725610 (Version 1)
Quarter: 2020Q2

REPORT INFORMATION
  Report Type: Spontaneous
  Country: CN (occurrence: CN)
  Receive Date: 20200429
  Receipt Date: 20200429
  Transmission Date: 20200714
  Serious: Yes (Other)
  Sender: FDA-Public Use
  Company Number: CN-FRESENIUS KABI-FK202004221

PATIENT
  Age: 28 Year
  Sex: Male

DRUGS (21)
  1. CASPOFUNGIN (MANUFACTURER UNKNOWN) [Suspect]
     Active Substance: CASPOFUNGIN
     Route: 065
  2. FLUCONAZOLE (MANUFACTURER UNKNOWN) [Suspect]
     Active Substance: FLUCONAZOLE
     Indication: CANDIDA INFECTION
     Route: 065
  3. SULFAMETHOXAZOLE [Suspect]
     Active Substance: SULFAMETHOXAZOLE
     Indication: STENOTROPHOMONAS INFECTION
     Route: 050
  4. VANCOMYCIN (MANUFACTURER UNKNOWN) [Suspect]
     Active Substance: VANCOMYCIN
     Route: 065
  5. VANCOMYCIN (MANUFACTURER UNKNOWN) [Suspect]
     Active Substance: VANCOMYCIN
     Route: 065
  6. CASPOFUNGIN (MANUFACTURER UNKNOWN) [Suspect]
     Active Substance: CASPOFUNGIN
     Route: 065
  7. VANCOMYCIN (MANUFACTURER UNKNOWN) [Suspect]
     Active Substance: VANCOMYCIN
     Indication: EVIDENCE BASED TREATMENT
     Route: 065
  8. VANCOMYCIN (MANUFACTURER UNKNOWN) [Suspect]
     Active Substance: VANCOMYCIN
     Route: 050
  9. LINEZOLID (MANUFACTURER UNKNOWN) [Suspect]
     Active Substance: LINEZOLID
     Indication: STAPHYLOCOCCAL INFECTION
     Route: 065
  10. IMIPENEM AND CILASTATIN [Suspect]
     Active Substance: CILASTATIN SODIUM\IMIPENEM
     Indication: EVIDENCE BASED TREATMENT
     Route: 065
  11. TIGECYCLINE (MANUFACTURER UNKNOWN) [Suspect]
     Active Substance: TIGECYCLINE
     Indication: PRODUCT USED FOR UNKNOWN INDICATION
     Route: 065
  12. TIGECYCLINE (MANUFACTURER UNKNOWN) [Suspect]
     Active Substance: TIGECYCLINE
     Route: 065
  13. SODIUM BICARBONATE. [Concomitant]
     Active Substance: SODIUM BICARBONATE
     Indication: PRODUCT USED FOR UNKNOWN INDICATION
     Dosage: UNKNOWN
     Route: 065
  14. CASPOFUNGIN (MANUFACTURER UNKNOWN) [Suspect]
     Active Substance: CASPOFUNGIN
     Indication: CANDIDA INFECTION
     Route: 065
  15. TIGECYCLINE (MANUFACTURER UNKNOWN) [Suspect]
     Active Substance: TIGECYCLINE
     Route: 065
  16. OMEPRAZOLE. [Suspect]
     Active Substance: OMEPRAZOLE
     Indication: DRUG THERAPY
     Route: 042
  17. FLUCONAZOLE (MANUFACTURER UNKNOWN) [Suspect]
     Active Substance: FLUCONAZOLE
     Route: 065
  18. AMIKACIN (MANUFACTURER UNKNOWN) [Suspect]
     Active Substance: AMIKACIN
     Indication: KLEBSIELLA INFECTION
     Route: 065
  19. TEICOPLANIN [Suspect]
     Active Substance: TEICOPLANIN
     Indication: PRODUCT USED FOR UNKNOWN INDICATION
     Dosage: UNKNOWN
     Route: 065
  20. MEROPENEM (MANUFACTURER UNKNOWN) [Suspect]
     Active Substance: MEROPENEM
     Indication: PRODUCT USED FOR UNKNOWN INDICATION
     Route: 065
  21. METRONIDAZOLE. [Suspect]
     Active Substance: METRONIDAZOLE
     Indication: PRODUCT USED FOR UNKNOWN INDICATION
     Dosage: UNKNOWN
     Route: 065

REACTIONS (5)
  - Lactic acidosis [Recovered/Resolved]
  - Pancreatic necrosis [Unknown]
  - Stenotrophomonas infection [Recovered/Resolved]
  - Hepatic failure [Unknown]
  - Drug resistance [Recovered/Resolved]
